FAERS Safety Report 15282073 (Version 1)
Quarter: 2018Q3

REPORT INFORMATION
  Report Type: Spontaneous
  Country: US (occurrence: US)
  Receive Date: 20180731
  Receipt Date: 20180731
  Transmission Date: 20181010
  Serious: Yes (Life-Threatening, Hospitalization, Disabling)
  Sender: FDA-Public Use
  Company Number: None

PATIENT
  Age: 19 Year
  Sex: Female
  Weight: 49.5 kg

DRUGS (1)
  1. VESTURA [Suspect]
     Active Substance: DROSPIRENONE\ETHINYL ESTRADIOL
     Indication: CONTRACEPTION
     Dates: start: 20150115, end: 20170821

REACTIONS (2)
  - Deep vein thrombosis [None]
  - Pulmonary embolism [None]

NARRATIVE: CASE EVENT DATE: 20170820
